FAERS Safety Report 6183865-5 (Version None)
Quarter: 2009Q2

REPORT INFORMATION
  Report Type: 
  Country: None (occurrence: None)
  Receive Date: 20090508
  Receipt Date: 20090508
  Transmission Date: 20091009
  Serious: Yes (Other)
  Sender: FDA-Public Use
  Company Number: US-PFIZER INC-2009172800

PATIENT
  Sex: Male
  Weight: 81.633 kg

DRUGS (5)
  1. LYRICA [Suspect]
     Indication: DIABETIC NEUROPATHY
     Dosage: UNK
     Dates: start: 20051101
  2. INSULIN [Concomitant]
     Indication: TYPE 2 DIABETES MELLITUS
     Dosage: UNK
  3. PEPCID [Concomitant]
     Indication: GASTROOESOPHAGEAL REFLUX DISEASE
     Dosage: UNK
  4. GABAPENTIN [Concomitant]
     Dosage: UNK
  5. LIPASE [Concomitant]
     Indication: PANCREATITIS
     Dosage: UNK

REACTIONS (8)
  - BLISTER [None]
  - DRY SKIN [None]
  - GINGIVAL SWELLING [None]
  - LIP SWELLING [None]
  - OEDEMA PERIPHERAL [None]
  - PRURITUS [None]
  - RENAL DISORDER [None]
  - URINE FLOW DECREASED [None]
